FAERS Safety Report 5935938-7 (Version None)
Quarter: 2008Q4

REPORT INFORMATION
  Report Type: 
  Country: None (occurrence: None)
  Receive Date: 20081030
  Receipt Date: 20081023
  Transmission Date: 20090506
  Serious: Yes (Hospitalization, Other)
  Sender: FDA-Public Use
  Company Number: US-ELI_LILLY_AND_COMPANY-US200810005799

PATIENT
  Sex: Male

DRUGS (7)
  1. HUMALOG [Suspect]
  2. ASPIRIN [Concomitant]
  3. ASCORBIC ACID [Concomitant]
  4. LEXAPRO [Concomitant]
  5. VITAMINS [Concomitant]
  6. BENAZEPRIL HYDROCHLORIDE [Concomitant]
  7. LEVOTHROID [Concomitant]

REACTIONS (5)
  - BLOOD GLUCOSE INCREASED [None]
  - CONVULSION [None]
  - DRUG INEFFECTIVE [None]
  - MEMORY IMPAIRMENT [None]
  - STUBBORNNESS [None]
